FAERS Safety Report 8873116 (Version 1)
Quarter: 2012Q4

REPORT INFORMATION
  Report Type: Report from Study
  Country: US (occurrence: US)
  Receive Date: 20121030
  Receipt Date: 20121030
  Transmission Date: 20130627
  Serious: No
  Sender: FDA-Public Use
  Company Number: US-ABBOTT-12P-163-0913053-00

PATIENT
  Sex: Female

DRUGS (2)
  1. LUPRON DEPOT 3.75 MG [Suspect]
     Indication: ENDOMETRIOSIS
  2. LUPRON DEPOT [Suspect]
     Indication: ENDOMETRIOSIS

REACTIONS (5)
  - Mood swings [Unknown]
  - Hyperaesthesia [Unknown]
  - Influenza like illness [Unknown]
  - Abdominal pain lower [Recovered/Resolved]
  - Uterine pain [Recovered/Resolved]
